FAERS Safety Report 24548544 (Version 2)
Quarter: 2024Q4

REPORT INFORMATION
  Report Type: Spontaneous
  Country: DE (occurrence: DE)
  Receive Date: 20241025
  Receipt Date: 20241107
  Transmission Date: 20250114
  Serious: Yes (Death)
  Sender: TEVA
  Company Number: DE-TEVA-VS-3257091

PATIENT
  Age: 23 Year
  Sex: Male

DRUGS (9)
  1. DOCETAXEL [Suspect]
     Active Substance: DOCETAXEL
     Indication: Osteosarcoma metastatic
     Route: 065
  2. TRABECTEDIN [Suspect]
     Active Substance: TRABECTEDIN
     Indication: Osteosarcoma metastatic
     Route: 065
  3. ETOPOSIDE [Concomitant]
     Active Substance: ETOPOSIDE
     Indication: Osteosarcoma metastatic
     Route: 065
  4. IFOSFAMIDE [Concomitant]
     Active Substance: IFOSFAMIDE
     Indication: Osteosarcoma metastatic
     Route: 065
  5. CARBOPLATIN [Concomitant]
     Active Substance: CARBOPLATIN
     Indication: Osteosarcoma metastatic
     Route: 065
  6. OLAPARIB [Suspect]
     Active Substance: OLAPARIB
     Indication: Osteosarcoma metastatic
     Route: 065
  7. ALPELISIB [Suspect]
     Active Substance: ALPELISIB
     Indication: Osteosarcoma metastatic
     Route: 065
  8. CABOZANTINIB [Suspect]
     Active Substance: CABOZANTINIB
     Indication: Osteosarcoma metastatic
     Route: 065
  9. GEMCITABINE [Suspect]
     Active Substance: GEMCITABINE
     Indication: Osteosarcoma metastatic
     Route: 065

REACTIONS (2)
  - Drug ineffective [Fatal]
  - Off label use [Unknown]
